FAERS Safety Report 21555849 (Version 2)
Quarter: 2022Q4

REPORT INFORMATION
  Report Type: Spontaneous
  Country: JP (occurrence: None)
  Receive Date: 20221104
  Receipt Date: 20221125
  Transmission Date: 20230112
  Serious: Yes (Other)
  Sender: FDA-Public Use
  Company Number: 2022A324629

PATIENT
  Age: 60 Year
  Sex: Male

DRUGS (6)
  1. DAPAGLIFLOZIN [Suspect]
     Active Substance: DAPAGLIFLOZIN
     Indication: Chronic kidney disease
     Dosage: AFTER BREAKFAST
     Route: 048
     Dates: start: 202203, end: 202206
  2. FEBUXOSTAT [Concomitant]
     Active Substance: FEBUXOSTAT
     Dosage: AFTER BREAKFAST
     Route: 048
  3. AZILSARTAN KAMEDOXOMIL [Concomitant]
     Active Substance: AZILSARTAN KAMEDOXOMIL
     Dosage: AFTER BREAKFAST
     Route: 048
  4. CARDENALIN [Concomitant]
     Active Substance: DOXAZOSIN MESYLATE
     Dosage: BEFORE BEDTIME
     Route: 048
  5. DIPHENHYDRAMINE [Concomitant]
     Active Substance: DIPHENHYDRAMINE
     Dosage: OPITIMAL DOSE X SEVERAL TIMES/DAY
     Route: 062
  6. MENTHA OIL [Concomitant]
     Dosage: DOSE UNKNOWN
     Route: 062

REACTIONS (3)
  - Hydronephrosis [Unknown]
  - Renal impairment [Unknown]
  - Ureterolithiasis [Unknown]

NARRATIVE: CASE EVENT DATE: 20220101
